FAERS Safety Report 18637104 (Version 4)
Quarter: 2021Q3

REPORT INFORMATION
  Report Type: Report from Study
  Country: US (occurrence: US)
  Receive Date: 20201218
  Receipt Date: 20210730
  Transmission Date: 20211014
  Serious: Yes (Hospitalization)
  Sender: FDA-Public Use
  Company Number: US-TAKEDA-2020TUS058724

PATIENT
  Age: 70 Year
  Sex: Male
  Weight: 91 kg

DRUGS (4)
  1. PONATINIB [Suspect]
     Active Substance: PONATINIB
     Indication: CHRONIC MYELOID LEUKAEMIA
     Dosage: 30 MILLIGRAM, QD
     Route: 065
  2. NIFEDIPINE. [Concomitant]
     Active Substance: NIFEDIPINE
     Indication: BLOOD PRESSURE MEASUREMENT
     Dosage: 30 MILLIGRAM
     Route: 065
  3. HYDROCHLOROTHIAZIDE. [Concomitant]
     Active Substance: HYDROCHLOROTHIAZIDE
     Indication: HYPERTENSION
     Dosage: 25 MILLIGRAM, QD
     Route: 065
  4. PONATINIB [Suspect]
     Active Substance: PONATINIB
     Indication: LEUKAEMIA
     Dosage: 15 MILLIGRAM, BID
     Route: 065

REACTIONS (5)
  - Pain [Recovered/Resolved]
  - Pyrexia [Unknown]
  - Skin disorder [Unknown]
  - Skin lesion [Recovered/Resolved]
  - Constipation [Not Recovered/Not Resolved]

NARRATIVE: CASE EVENT DATE: 202106
